FAERS Safety Report 24872557 (Version 1)
Quarter: 2025Q1

REPORT INFORMATION
  Report Type: Spontaneous
  Country: JP (occurrence: JP)
  Receive Date: 20250122
  Receipt Date: 20250122
  Transmission Date: 20250408
  Serious: Yes (Other)
  Sender: SANDOZ
  Company Number: None

PATIENT
  Age: 68 Year
  Sex: Female

DRUGS (1)
  1. METHOTREXATE [Suspect]
     Active Substance: METHOTREXATE
     Indication: Rheumatoid arthritis
     Route: 065
     Dates: start: 201311, end: 202303

REACTIONS (2)
  - Hypercalcaemia of malignancy [Recovering/Resolving]
  - Diffuse large B-cell lymphoma stage IV [Recovering/Resolving]

NARRATIVE: CASE EVENT DATE: 20230301
